FAERS Safety Report 5448835-0 (Version None)
Quarter: 2007Q3

REPORT INFORMATION
  Report Type: 
  Country: None (occurrence: None)
  Receive Date: 20070911
  Receipt Date: 20070712
  Transmission Date: 20080115
  Serious: No
  Sender: FDA-Public Use
  Company Number: US-BRISTOL-MYERS SQUIBB COMPANY-13844535

PATIENT
  Sex: Female
  Weight: 63 kg

DRUGS (3)
  1. EMSAM [Suspect]
     Indication: DEPRESSION
     Route: 062
     Dates: start: 20070401
  2. EMSAM [Suspect]
     Indication: MENOPAUSE
     Route: 062
     Dates: start: 20070401
  3. SINGULAIR [Concomitant]

REACTIONS (1)
  - APPLICATION SITE REACTION [None]
